FAERS Safety Report 23422680 (Version 1)
Quarter: 2024Q1

REPORT INFORMATION
  Report Type: Spontaneous
  Country: IT (occurrence: IT)
  Receive Date: 20240119
  Receipt Date: 20240119
  Transmission Date: 20240409
  Serious: Yes (Other)
  Sender: FDA-Public Use
  Company Number: None

PATIENT
  Age: 62 Year

DRUGS (5)
  1. ATORVASTATIN CALCIUM [Suspect]
     Active Substance: ATORVASTATIN CALCIUM
     Indication: Dyslipidaemia
     Dosage: ATORVASTATINA TE*30CPR RIV80MG- SCHEMA POSOLOGICO: 1 CPR/DIE LA SERA
     Route: 048
     Dates: start: 20230810, end: 20231109
  2. OMEPRAZOLO DOC GENERICI [Concomitant]
     Indication: Gastrooesophageal reflux disease
     Dosage: OMEPRAZOLO DOC*28CPS GASTR10MG - 1CP/DIE LA MATTINA
     Route: 048
     Dates: start: 2023
  3. RIFAXIMIN [Concomitant]
     Active Substance: RIFAXIMIN
     Indication: Diverticulum
     Dosage: NORMIX*AD 12CPR RIV 200MG - CICLI DI TERAPIA AL BISOGNO QUANDO SUBENTRANO SINTOMI GI DA DIVERTICO...
     Route: 048
     Dates: start: 2023
  4. LERCANIDIPINA DOC GENERICI [Concomitant]
     Indication: Hypertensive heart disease
     Dosage: LERCANIDIPINA DOC*28CPR 10MG - 1CP/DIE LA MATTINA
     Route: 048
     Dates: start: 2023
  5. RAMIPRIL DOC GENERICI [Concomitant]
     Indication: Hypertensive heart disease
     Dosage: RAMIPRIL DOC*28CPR DIV 10MG - 1 CP/DIE
     Route: 048
     Dates: start: 2023

REACTIONS (4)
  - Hepatotoxicity [Not Recovered/Not Resolved]
  - Aspartate aminotransferase increased [Not Recovered/Not Resolved]
  - Gamma-glutamyltransferase increased [Not Recovered/Not Resolved]
  - Alanine aminotransferase increased [Not Recovered/Not Resolved]

NARRATIVE: CASE EVENT DATE: 20231101
